FAERS Safety Report 7068429-3 (Version None)
Quarter: 2010Q4

REPORT INFORMATION
  Report Type: 
  Country: None (occurrence: None)
  Receive Date: 20101028
  Receipt Date: 20101018
  Transmission Date: 20110411
  Serious: Yes (Hospitalization)
  Sender: FDA-Public Use
  Company Number: B0681272A

PATIENT
  Sex: Female

DRUGS (2)
  1. COMBIVIR [Suspect]
     Indication: PROPHYLAXIS
     Dosage: 2TAB PER DAY
     Route: 048
     Dates: start: 20100928, end: 20100930
  2. KALETRA [Suspect]
     Indication: PROPHYLAXIS
     Dosage: 2TAB PER DAY
     Route: 048
     Dates: start: 20100928, end: 20100930

REACTIONS (7)
  - ABDOMINAL PAIN UPPER [None]
  - ASTHENIA [None]
  - BLOOD BILIRUBIN INCREASED [None]
  - BLOOD POTASSIUM DECREASED [None]
  - NAUSEA [None]
  - PARAESTHESIA [None]
  - VOMITING [None]
